FAERS Safety Report 24387370 (Version 3)
Quarter: 2024Q4

REPORT INFORMATION
  Report Type: Spontaneous
  Country: JP (occurrence: JP)
  Receive Date: 20241002
  Receipt Date: 20241111
  Transmission Date: 20250115
  Serious: Yes (Other)
  Sender: ABBVIE
  Company Number: JP-ABBVIE-5946089

PATIENT
  Age: 27 Year
  Sex: Male
  Weight: 58 kg

DRUGS (8)
  1. RINVOQ [Suspect]
     Active Substance: UPADACITINIB
     Indication: Dermatitis atopic
     Dosage: FORM STRENGTH: 15 MILLIGRAM
     Route: 048
     Dates: start: 20220315, end: 20240828
  2. FEXOFENADINE HYDROCHLORIDE [Concomitant]
     Active Substance: FEXOFENADINE HYDROCHLORIDE
     Indication: Dermatitis atopic
     Dosage: TIME INTERVAL: 0.33333333 DAYS: 180 MILLIGRAM
     Route: 048
     Dates: start: 20220105
  3. DEXCHLORPHENIRAMINE [Concomitant]
     Active Substance: DEXCHLORPHENIRAMINE
     Indication: Dermatitis atopic
     Dosage: 4 MILLIGRAM
     Route: 048
  4. FRADIOMYCIN SULFATE [Concomitant]
     Indication: Dermatitis atopic
     Route: 061
  5. HEPARINOID [Concomitant]
     Indication: Dermatitis atopic
     Route: 061
     Dates: start: 20220616, end: 20230116
  6. HYDROCORTISONE [Concomitant]
     Active Substance: HYDROCORTISONE
     Indication: Dermatitis atopic
     Route: 061
  7. HYDROCORTISONE PROBUTATE [Concomitant]
     Active Substance: HYDROCORTISONE PROBUTATE
     Indication: Dermatitis atopic
     Route: 061
     Dates: start: 20200616
  8. METHYLPREDNISOLONE [Concomitant]
     Active Substance: METHYLPREDNISOLONE
     Indication: Dermatitis atopic
     Route: 061

REACTIONS (7)
  - Cutaneous T-cell lymphoma [Recovered/Resolved]
  - Herpes zoster [Unknown]
  - Blister [Unknown]
  - Pain [Unknown]
  - Lymphadenopathy [Unknown]
  - Erythema [Recovered/Resolved]
  - Erythema [Not Recovered/Not Resolved]

NARRATIVE: CASE EVENT DATE: 20240605
